FAERS Safety Report 9150538 (Version 1)
Quarter: 2013Q1

REPORT INFORMATION
  Report Type: Spontaneous
  Country: US (occurrence: US)
  Receive Date: 20130308
  Receipt Date: 20130308
  Transmission Date: 20140127
  Serious: No
  Sender: FDA-Public Use
  Company Number: US-GLAXOSMITHKLINE-A0996240A

PATIENT
  Age: 83 Year
  Sex: Female

DRUGS (2)
  1. NICORETTE MINT [Suspect]
     Indication: NICOTINE DEPENDENCE
  2. NICORETTE FRUIT CHILL [Suspect]
     Indication: NICOTINE DEPENDENCE

REACTIONS (3)
  - Nicotine dependence [Not Recovered/Not Resolved]
  - Intentional drug misuse [Unknown]
  - Product quality issue [Unknown]
